FAERS Safety Report 18272310 (Version 1)
Quarter: 2020Q3

REPORT INFORMATION
  Report Type: Spontaneous
  Country: FR (occurrence: FR)
  Receive Date: 20200916
  Receipt Date: 20200916
  Transmission Date: 20201103
  Serious: Yes (Death)
  Sender: FDA-Public Use
  Company Number: FR-SUN PHARMACEUTICAL INDUSTRIES LTD-2020RR-261002

PATIENT
  Age: 78 Year
  Sex: Female
  Weight: 74 kg

DRUGS (2)
  1. PARACETAMOL [Suspect]
     Active Substance: ACETAMINOPHEN
     Indication: POISONING DELIBERATE
     Dosage: 38 GRAM, IN TOTAL
     Route: 048
     Dates: start: 20200819, end: 20200819
  2. METFORMIN [Suspect]
     Active Substance: METFORMIN HYDROCHLORIDE
     Indication: POISONING DELIBERATE
     Dosage: UNSPECIFIED ()
     Route: 048
     Dates: start: 20200819, end: 20200819

REACTIONS (2)
  - Shock [Fatal]
  - Hyperlactacidaemia [Fatal]

NARRATIVE: CASE EVENT DATE: 20200819
